FAERS Safety Report 8518491-3 (Version None)
Quarter: 2012Q3

REPORT INFORMATION
  Report Type: 
  Country: None (occurrence: None)
  Receive Date: 20120718
  Receipt Date: 20120413
  Transmission Date: 20120928
  Serious: No
  Sender: FDA-Public Use
  Company Number: US-BRISTOL-MYERS SQUIBB COMPANY-16521775

PATIENT
  Age: 85 Year
  Sex: Male
  Weight: 67 kg

DRUGS (2)
  1. COUMADIN [Suspect]
     Indication: ATRIAL FIBRILLATION
     Dosage: TWO DAYS AGO LAST DOSE:AFTER MRNG DOSE
  2. ATENOLOL [Concomitant]
     Indication: TACHYCARDIA

REACTIONS (4)
  - INSOMNIA [None]
  - DYSPNOEA [None]
  - HEART RATE INCREASED [None]
  - FATIGUE [None]
